FAERS Safety Report 7137594-1 (Version None)
Quarter: 2010Q4

REPORT INFORMATION
  Report Type: 
  Country: None (occurrence: None)
  Receive Date: 20101119
  Receipt Date: 20101105
  Transmission Date: 20110411
  Serious: Yes (Other)
  Sender: FDA-Public Use
  Company Number: 1000017321

PATIENT
  Age: 48 Year
  Sex: Female

DRUGS (2)
  1. LEXAPRO [Suspect]
     Dosage: ORAL
     Route: 048
     Dates: start: 20090101
  2. EFFEXOR XR [Suspect]
     Dosage: 75 MG, ORAL
     Route: 048
     Dates: start: 20090101

REACTIONS (3)
  - BONE DENSITY DECREASED [None]
  - OSTEONECROSIS [None]
  - TOOTH EXTRACTION [None]
